FAERS Safety Report 8423278-6 (Version None)
Quarter: 2012Q2

REPORT INFORMATION
  Report Type: 
  Country: None (occurrence: None)
  Receive Date: 20120608
  Receipt Date: 20120601
  Transmission Date: 20120825
  Serious: Yes (Other)
  Sender: FDA-Public Use
  Company Number: SE-PFIZER INC-2012104214

PATIENT
  Age: 4 Year
  Sex: Male

DRUGS (3)
  1. REFACTO [Suspect]
     Dosage: 2000 IU, 1X/DAY
     Route: 042
     Dates: start: 20111201
  2. REFACTO [Suspect]
     Dosage: 3000 IU, 1X/DAY
     Route: 042
     Dates: start: 20100501
  3. REFACTO [Suspect]
     Indication: FACTOR VIII DEFICIENCY
     Dosage: 500 IU, 1X/DAY
     Route: 042
     Dates: start: 20090108

REACTIONS (2)
  - ANTI FACTOR VIII ANTIBODY POSITIVE [None]
  - MOUTH HAEMORRHAGE [None]
